FAERS Safety Report 9012562 (Version 1)
Quarter: 2013Q1

REPORT INFORMATION
  Report Type: Spontaneous
  Country: HR (occurrence: HR)
  Receive Date: 20130114
  Receipt Date: 20130114
  Transmission Date: 20140127
  Serious: Yes (Other)
  Sender: FDA-Public Use
  Company Number: HR-TEVA-379723ISR

PATIENT
  Age: 26 Year
  Sex: Female

DRUGS (1)
  1. SUMAMED [Suspect]
     Indication: UREAPLASMA INFECTION
     Dosage: 1 GRAM DAILY;
     Route: 048
     Dates: start: 20100623, end: 20100623

REACTIONS (3)
  - Enterocolitis [Recovered/Resolved]
  - Diarrhoea [Recovered/Resolved]
  - Nausea [Recovered/Resolved]
